FAERS Safety Report 9752968 (Version 1)
Quarter: 2013Q4

REPORT INFORMATION
  Report Type: Spontaneous
  Country: US (occurrence: US)
  Receive Date: 20131213
  Receipt Date: 20131213
  Transmission Date: 20140711
  Serious: Yes (Hospitalization)
  Sender: FDA-Public Use
  Company Number: US-MALLINCKRODT-T201305068

PATIENT
  Age: 58 Year
  Sex: Male

DRUGS (8)
  1. FENTANYL TRANSDERMAL SYSTEM [Suspect]
     Indication: PAIN
     Dosage: 75 UG/HR, Q48H
     Route: 062
  2. FENTANYL TRANSDERMAL SYSTEM [Suspect]
     Dosage: 75 UG/HR, Q72H
     Route: 062
  3. OXYCODONE/ACETAMINOPHEN [Suspect]
     Indication: PAIN
     Dosage: 5/325 MG, BID
     Route: 048
  4. CITALOPRAM [Suspect]
     Indication: DEPRESSION
     Dosage: 40 MG, QD
     Route: 065
  5. MIRTAZAPINE [Suspect]
     Indication: DEPRESSION
     Dosage: 50 MG, QD AT BEDTIME
     Route: 065
  6. CELECOXIB [Concomitant]
     Indication: PAIN
     Dosage: 200 MG, BID
  7. DOXAZOSIN [Concomitant]
     Indication: BENIGN PROSTATIC HYPERPLASIA
     Dosage: 4 MG, UNK
  8. ZOLPIDEM [Concomitant]
     Indication: INSOMNIA
     Dosage: 12.5 MG, AT BEDTIME PRN

REACTIONS (3)
  - Serotonin syndrome [Recovered/Resolved]
  - Insomnia [Recovered/Resolved]
  - Yawning [Recovered/Resolved]
